FAERS Safety Report 4428413-2 (Version None)
Quarter: 2004Q3

REPORT INFORMATION
  Report Type: 
  Country: None (occurrence: None)
  Receive Date: 20040818
  Receipt Date: 20040804
  Transmission Date: 20050211
  Serious: Yes (Death)
  Sender: FDA-Public Use
  Company Number: 200412460EU

PATIENT
  Age: 75 Year
  Sex: Female
  Weight: 66 kg

DRUGS (9)
  1. ENOXAPARIN SODIUM [Suspect]
     Indication: CORONARY ANGIOPLASTY
     Route: 040
     Dates: start: 20040803, end: 20040803
  2. AMLODIPIN [Concomitant]
     Indication: HYPERTENSION
     Route: 048
  3. CLOPIDOGREL [Concomitant]
     Route: 048
  4. ASPIRIN [Concomitant]
     Route: 048
     Dates: start: 20040803
  5. PANTOPRAZOL [Concomitant]
     Indication: PROPHYLAXIS
     Route: 048
  6. SIMVASTATIN [Concomitant]
     Indication: GASTROINTESTINAL DISORDER
     Route: 048
  7. PENTOXIPHYLLIN [Concomitant]
     Indication: PERIPHERAL VASCULAR DISORDER
     Route: 048
  8. ALENDRONATE SODIUM [Concomitant]
     Indication: OSTEOPOROSIS
     Route: 048
  9. NITROGLYCERIN [Concomitant]
     Indication: ANGINA PECTORIS
     Route: 062

REACTIONS (3)
  - CORONARY ARTERY THROMBOSIS [None]
  - MYOCARDIAL INFARCTION [None]
  - PROCEDURAL HYPOTENSION [None]
